FAERS Safety Report 7782165-7 (Version None)
Quarter: 2011Q3

REPORT INFORMATION
  Report Type: 
  Country: None (occurrence: None)
  Receive Date: 20110927
  Receipt Date: 20110913
  Transmission Date: 20111222
  Serious: Yes (Other)
  Sender: FDA-Public Use
  Company Number: US-AMGEN-US332165

PATIENT
  Age: 53 Year
  Sex: Male

DRUGS (5)
  1. NPLATE [Suspect]
     Indication: IDIOPATHIC THROMBOCYTOPENIC PURPURA
     Dosage: UNK
     Dates: start: 20081222
  2. DAPSONE [Concomitant]
     Dosage: UNK
     Dates: end: 20090101
  3. NPLATE [Suspect]
  4. LISINOPRIL [Concomitant]
     Indication: BLOOD PRESSURE
     Dosage: UNK
  5. ESCITALOPRAM [Concomitant]
     Dosage: UNK

REACTIONS (7)
  - ABDOMINAL PAIN [None]
  - RESPIRATORY TRACT INFECTION [None]
  - PAIN [None]
  - ESSENTIAL TREMOR [None]
  - DRUG INTERACTION [None]
  - ABDOMINAL TENDERNESS [None]
  - HAEMATOMA [None]
